FAERS Safety Report 8114700-3 (Version None)
Quarter: 2012Q1

REPORT INFORMATION
  Report Type: 
  Country: None (occurrence: None)
  Receive Date: 20120206
  Receipt Date: 20120131
  Transmission Date: 20120608
  Serious: Yes (Death)
  Sender: FDA-Public Use
  Company Number: US-PFIZER INC-2011244489

PATIENT
  Sex: Male

DRUGS (19)
  1. XALKORI [Suspect]
     Indication: NON-SMALL CELL LUNG CANCER
     Dosage: 250 MG, 2X/DAY
     Route: 048
     Dates: start: 20111006, end: 20111001
  2. OMEPRAZOLE [Concomitant]
     Dosage: UNK
  3. ONDANSETRON [Concomitant]
     Dosage: UNK
  4. LORAZEPAM [Concomitant]
     Indication: ANXIETY
     Dosage: (0.5 TO 1 MG EVERY 2 HOURS)
     Route: 042
  5. VASOPRESSIN INJECTION [Concomitant]
     Dosage: UNK
     Route: 042
  6. AUGMENTIN '125' [Concomitant]
     Dosage: UNK
  7. HYDROMORPHONE [Concomitant]
     Dosage: UNK
  8. CEFEPIME [Concomitant]
     Dosage: 2 G, 2X/DAY (EVERY 12 HOURS)
     Route: 042
  9. FENTANYL [Concomitant]
     Dosage: UNK
     Route: 042
  10. LORAZEPAM [Concomitant]
     Indication: INSOMNIA
  11. ONDANSETRON HCL [Concomitant]
     Indication: NAUSEA
     Dosage: 6 MG, AS NEEDED
     Route: 042
  12. METOCLOPRAMIDE [Concomitant]
     Dosage: UNK
  13. PROCHLORPERAZINE [Concomitant]
     Dosage: UNK
  14. FUROSEMIDE [Concomitant]
     Dosage: UNK
  15. ALBUTEROL [Concomitant]
     Dosage: UNK, AS NEEDED
  16. NORCO [Concomitant]
     Dosage: UNK
  17. VANCOMYCIN [Concomitant]
     Dosage: 1500 MG, 1X/DAY
     Route: 042
  18. NEXIUM [Concomitant]
     Dosage: 40 MG, 1X/DAY
     Route: 042
  19. NOREPINEPHRINE [Concomitant]
     Indication: HYPOTENSION
     Dosage: UNK
     Route: 042

REACTIONS (5)
  - RENAL FAILURE ACUTE [None]
  - SEPTIC SHOCK [None]
  - NON-SMALL CELL LUNG CANCER [None]
  - INTESTINAL PERFORATION [None]
  - DISEASE PROGRESSION [None]
